FAERS Safety Report 4598497-X (Version None)
Quarter: 2005Q1

REPORT INFORMATION
  Report Type: 
  Country: None (occurrence: None)
  Receive Date: 20050303
  Receipt Date: 20050303
  Transmission Date: 20050727
  Serious: Yes (Other)
  Sender: FDA-Public Use
  Company Number: None

PATIENT
  Age: 23 Year
  Sex: Female

DRUGS (1)
  1. PERCOCET-5 [Suspect]
     Indication: PAIN MANAGEMENT
     Dosage: 1-2 TAB PO Q 6 HR PO
     Route: 048

REACTIONS (1)
  - PRURITUS [None]
